FAERS Safety Report 26175257 (Version 1)
Quarter: 2025Q4

REPORT INFORMATION
  Report Type: Spontaneous
  Country: EU (occurrence: EU)
  Receive Date: 20251218
  Receipt Date: 20251218
  Transmission Date: 20260117
  Serious: Yes (Other)
  Sender: TEVA
  Company Number: EU-TEVA-VS-3387323

PATIENT
  Age: 70 Year
  Sex: Male

DRUGS (1)
  1. SOTALOL [Suspect]
     Active Substance: SOTALOL
     Indication: Arrhythmia
     Dosage: TEVA, 80 MG HALF A TABLET TO TAKE IN THE MORNING AND IN THE EVENING INSTEAD OF A FULL TABLET?LAST...
     Route: 065
     Dates: start: 202510

REACTIONS (2)
  - Drug-induced liver injury [Recovered/Resolved]
  - Incorrect dose administered [Unknown]

NARRATIVE: CASE EVENT DATE: 20250101
